FAERS Safety Report 5820941-8 (Version None)
Quarter: 2008Q3

REPORT INFORMATION
  Report Type: 
  Country: None (occurrence: None)
  Receive Date: 20080722
  Receipt Date: 20080718
  Transmission Date: 20090109
  Serious: Yes (Death, Hospitalization, Other)
  Sender: FDA-Public Use
  Company Number: 2008SP014058

PATIENT
  Age: 83 Year
  Sex: Male

DRUGS (13)
  1. TEMODAR [Suspect]
     Indication: NON-SMALL CELL LUNG CANCER
     Dosage: 75 MG/M2; QD; PO
     Route: 048
     Dates: start: 20080603, end: 20080623
  2. JANUIVA (CON.) [Concomitant]
  3. LOPRESSOR (CON.) [Concomitant]
  4. COUMADIN (CON.) [Concomitant]
  5. HUMIBID (CON.) [Concomitant]
  6. ASPIRIN (CON.) [Concomitant]
  7. LISINOPRIL (CON.) [Concomitant]
  8. HYDROCHLOROTHIAZIDE (CON.) [Concomitant]
  9. LASIX (CON.) [Concomitant]
  10. SIMVASTATIN (CON.) [Concomitant]
  11. COMBIVENT (CON.) [Concomitant]
  12. PULMICORT (CON.) [Concomitant]
  13. LANTUS (CON.) [Concomitant]

REACTIONS (10)
  - ANAEMIA [None]
  - DISEASE PROGRESSION [None]
  - FALL [None]
  - HIP FRACTURE [None]
  - HYPOTENSION [None]
  - POST PROCEDURAL COMPLICATION [None]
  - RENAL FAILURE [None]
  - THROMBOCYTOPENIA [None]
  - UPPER GASTROINTESTINAL HAEMORRHAGE [None]
  - VENTRICULAR TACHYCARDIA [None]
